FAERS Safety Report 4330245-0 (Version None)
Quarter: 2004Q1

REPORT INFORMATION
  Report Type: 
  Country: None (occurrence: None)
  Receive Date: 20040329
  Receipt Date: 20040322
  Transmission Date: 20041129
  Serious: Yes (Death)
  Sender: FDA-Public Use
  Company Number: A044-002-004914

PATIENT
  Age: 80 Year
  Sex: Male

DRUGS (4)
  1. ARICEPT [Suspect]
     Indication: DEMENTIA ALZHEIMER'S TYPE
     Dosage: ORAL
     Route: 048
  2. ACEBUTOLOL [Suspect]
     Dosage: ORAL
     Route: 048
     Dates: start: 20020615, end: 20031230
  3. MEMANTINE (EXIBA) [Suspect]
     Indication: DEMENTIA ALZHEIMER'S TYPE
     Dosage: ORAL
     Route: 048
     Dates: start: 20031223, end: 20031230
  4. PAROXETINE HCL [Suspect]
     Dosage: ORAL
     Route: 048
     Dates: start: 20020615, end: 20031230

REACTIONS (4)
  - BRADYCARDIA [None]
  - BRONCHITIS [None]
  - CARDIOPULMONARY FAILURE [None]
  - DRUG INTERACTION [None]
